FAERS Safety Report 19376325 (Version 1)
Quarter: 2021Q2

REPORT INFORMATION
  Report Type: Spontaneous
  Country: AR (occurrence: AR)
  Receive Date: 20210604
  Receipt Date: 20210604
  Transmission Date: 20210717
  Serious: Yes (Other)
  Sender: FDA-Public Use
  Company Number: AR-PFIZER INC-2021593155

PATIENT
  Age: 46 Year
  Sex: Female

DRUGS (1)
  1. IBRANCE [Suspect]
     Active Substance: PALBOCICLIB
     Indication: BREAST CANCER METASTATIC
     Dosage: 125 MG
     Dates: start: 2019, end: 2019

REACTIONS (6)
  - Agitation [Unknown]
  - Pulmonary oedema [Unknown]
  - Neoplasm progression [Unknown]
  - Lung disorder [Unknown]
  - Gait inability [Unknown]
  - Respiratory disorder [Unknown]

NARRATIVE: CASE EVENT DATE: 2019
